FAERS Safety Report 16363293 (Version 1)
Quarter: 2019Q2

REPORT INFORMATION
  Report Type: Spontaneous
  Country: BE (occurrence: BE)
  Receive Date: 20190528
  Receipt Date: 20190528
  Transmission Date: 20190711
  Serious: Yes (Life-Threatening, Hospitalization, Other)
  Sender: FDA-Public Use
  Company Number: BE-MYLANLABS-2019M1048231

PATIENT
  Age: 63 Year
  Sex: Male
  Weight: 52 kg

DRUGS (9)
  1. PANTOMED                           /01263204/ [Interacting]
     Active Substance: PANTOPRAZOLE SODIUM
     Indication: PRODUCT USED FOR UNKNOWN INDICATION
     Dosage: 8 MG, 1/H
     Route: 042
     Dates: start: 20180625, end: 20180723
  2. URSOFALK [Concomitant]
     Active Substance: URSODIOL
     Dosage: 250 MG, 2X/DAY
     Route: 048
  3. DIFLUCAN [Interacting]
     Active Substance: FLUCONAZOLE
     Indication: PROPHYLAXIS
     Dosage: 200 MG, UNK (SINCE SEVERAL YEARS)
     Route: 048
  4. PARACETAMOL [Concomitant]
     Active Substance: ACETAMINOPHEN
     Dosage: 1 G, 3X/DAY (AS NEEDED)
     Route: 048
  5. VITAMIN B6 [Concomitant]
     Active Substance: PYRIDOXINE HYDROCHLORIDE
     Dosage: 100 MG, 1X/DAY
     Route: 042
  6. OLIMEL [Concomitant]
     Active Substance: AMINO ACIDS\DEXTROSE\SOYBEAN OIL
     Dosage: UNK
     Route: 051
  7. VITAMINE B1 [Concomitant]
     Active Substance: THIAMINE HYDROCHLORIDE
     Dosage: 250 MG, 1X/DAY
     Route: 042
  8. PROGRAFT [Concomitant]
     Active Substance: TACROLIMUS
     Dosage: 0.5 MG, 2X/DAY (SINCE SEVERAL YEARS)
     Route: 048
  9. ACICLOVIR [Suspect]
     Active Substance: ACYCLOVIR
     Indication: PRODUCT USED FOR UNKNOWN INDICATION
     Dosage: 400 MG, 1X/DAY (STARTED MORE THAN 5 YEARS AGO)
     Route: 048
     Dates: end: 20180723

REACTIONS (6)
  - Off label use [Unknown]
  - Neurological decompensation [Recovered/Resolved with Sequelae]
  - Drug interaction [Recovered/Resolved with Sequelae]
  - Coma [Recovered/Resolved with Sequelae]
  - Somnolence [Recovered/Resolved with Sequelae]
  - Encephalopathy [Recovered/Resolved with Sequelae]

NARRATIVE: CASE EVENT DATE: 20180625
